FAERS Safety Report 9922951 (Version 1)
Quarter: 2014Q1

REPORT INFORMATION
  Report Type: Spontaneous
  Country: US (occurrence: US)
  Receive Date: 20140225
  Receipt Date: 20140225
  Transmission Date: 20141002
  Serious: Yes (Hospitalization)
  Sender: FDA-Public Use
  Company Number: PHHY2014US023061

PATIENT
  Age: 15 Year
  Sex: Female

DRUGS (31)
  1. VALPROIC ACID [Suspect]
     Indication: AGGRESSION
  2. TOPIRAMATE [Suspect]
     Indication: AGGRESSION
  3. OXCARBAZEPINE [Suspect]
     Indication: AGGRESSION
     Dosage: 1200 MG, DAILY
  4. OXCARBAZEPINE [Suspect]
     Dosage: 600 MG, BID
  5. LAMOTRIGINE [Suspect]
     Indication: AGGRESSION
     Dosage: 25 MG, DAILY
  6. RISPERIDONE [Suspect]
     Indication: AGGRESSION
  7. ARIPIPRAZOLE [Suspect]
     Indication: AGGRESSION
  8. QUETIAPINE [Suspect]
     Indication: AGGRESSION
  9. ZIPRASIDONE [Suspect]
     Indication: AGGRESSION
  10. CLOZAPINE [Suspect]
     Indication: AGGRESSION
     Dosage: 300 MG, AT BEDTIME
  11. CHLORPROMAZINE [Suspect]
     Indication: AGGRESSION
     Dosage: 100 MG, DAILY
  12. HALOPERIDOL [Suspect]
     Indication: AGGRESSION
     Dosage: 2 MG, DAILY
  13. CLONIDINE [Suspect]
     Indication: AGGRESSION
  14. GUANFACINE HYDROCHLORIDE [Suspect]
     Indication: AGGRESSION
     Dosage: 2 MG, DAILY
  15. METHYLPHENIDATE [Suspect]
     Indication: AGGRESSION
  16. DEXTROAMPHETAMINE [Suspect]
     Indication: AGGRESSION
  17. SERTRALINE [Suspect]
     Indication: AGGRESSION
  18. PAROXETINE [Suspect]
     Indication: AGGRESSION
  19. CLONAZEPAM [Suspect]
     Indication: AGGRESSION
     Dosage: 3 MG, AT BEDTIME
  20. LORAZEPAM [Suspect]
     Indication: AGGRESSION
     Dosage: 2 MG, QID
  21. LORAZEPAM [Suspect]
     Dosage: 2 MG, UNK
  22. LORAZEPAM [Suspect]
     Dosage: 4 UNK, UNK
  23. TRAZODONE [Suspect]
     Indication: AGGRESSION
     Dosage: 200 MG, AT BEDTIME
  24. TRAZODONE [Suspect]
     Dosage: 100 MG, AT BEDTIME
  25. METHOHEXITAL [Concomitant]
     Indication: SEDATION
     Dosage: 100 MG, UNK
  26. LITHIUM [Concomitant]
     Dosage: 450 MG, TID
  27. LITHIUM [Concomitant]
     Dosage: 1050 MG, DAILY
  28. SUCCINYLCHOLINE [Concomitant]
     Indication: HYPOTONIA
     Dosage: 100 MG, UNK
  29. GLYCOPYRROLATE [Concomitant]
     Indication: ARRHYTHMIA PROPHYLAXIS
     Dosage: 0.2 MG, UNK
  30. FLUMAZENIL [Concomitant]
     Dosage: 1 MG, UNK
  31. MIDAZOLAM [Concomitant]
     Dosage: 2 MG, UNK

REACTIONS (2)
  - Aggression [Recovering/Resolving]
  - Drug ineffective [Unknown]
